FAERS Safety Report 12047076 (Version 1)
Quarter: 2016Q1

REPORT INFORMATION
  Report Type: Spontaneous
  Country: US (occurrence: US)
  Receive Date: 20160208
  Receipt Date: 20160208
  Transmission Date: 20160526
  Serious: Yes (Other)
  Sender: FDA-Public Use
  Company Number: US-GLAXOSMITHKLINE-US2016016802

PATIENT
  Sex: Female

DRUGS (2)
  1. PREDNISONE. [Concomitant]
     Active Substance: PREDNISONE
  2. BENLYSTA [Suspect]
     Active Substance: BELIMUMAB
     Indication: SYSTEMIC LUPUS ERYTHEMATOSUS

REACTIONS (10)
  - Sinusitis [Unknown]
  - Oropharyngeal pain [Unknown]
  - Pneumonia [Unknown]
  - Cough [Unknown]
  - Nausea [Unknown]
  - Dyspnoea [Unknown]
  - Malaise [Unknown]
  - Inappropriate schedule of drug administration [Unknown]
  - Abdominal pain upper [Unknown]
  - Neutrophil count decreased [Unknown]
